FAERS Safety Report 7547323-5 (Version None)
Quarter: 2011Q2

REPORT INFORMATION
  Report Type: 
  Country: None (occurrence: None)
  Receive Date: 20110614
  Receipt Date: 20110601
  Transmission Date: 20111010
  Serious: Yes (Hospitalization)
  Sender: FDA-Public Use
  Company Number: SE-PURDUE-GBR-2011-0008371

PATIENT
  Sex: Male

DRUGS (25)
  1. SINGULAIR [Concomitant]
  2. ESCITALOPRAM [Concomitant]
  3. IMDUR [Concomitant]
  4. SIMVASTATIN [Concomitant]
  5. FOLACIN                            /00198401/ [Concomitant]
  6. PARAFLEX                           /00041601/ [Concomitant]
  7. FLUSCAND [Concomitant]
  8. OXYNORM 20 MG KAPSEL, HARD [Suspect]
     Indication: BACK PAIN
     Dosage: 20 MG, BID
     Route: 048
     Dates: start: 20100916, end: 20110331
  9. BISOPROLOL FUMARATE [Concomitant]
  10. LASIX [Concomitant]
  11. TROMBYL [Concomitant]
     Dosage: 75 MG, UNK
  12. TRYPTIZOL                          /00002202/ [Concomitant]
  13. GLYTRIN [Concomitant]
  14. PROPAVAN [Concomitant]
  15. SYMBICORT [Concomitant]
  16. VESICARE [Concomitant]
  17. FINASTERID ACTAVIS [Concomitant]
  18. FLUNITRAZEPAM NM [Concomitant]
  19. COMBIVENT [Concomitant]
  20. OXYCONTIN 10 MG DEPOTTABLETT [Suspect]
     Indication: BACK PAIN
     Dosage: 10 MG, BID
     Route: 048
     Dates: start: 20110322, end: 20110331
  21. PANODIL FORTE [Concomitant]
  22. ACETYLCYSTEIN ALTERNOVA [Concomitant]
  23. SOBRIL [Concomitant]
  24. OMEPRAZOL ACTAVIS [Concomitant]
  25. ENALAPRIL                          /00574902/ [Concomitant]

REACTIONS (2)
  - AMNESIA [None]
  - DEPRESSED LEVEL OF CONSCIOUSNESS [None]
